FAERS Safety Report 18820065 (Version 1)
Quarter: 2021Q1

REPORT INFORMATION
  Report Type: Spontaneous
  Country: NL (occurrence: NL)
  Receive Date: 20210202
  Receipt Date: 20210202
  Transmission Date: 20210419
  Serious: Yes (Hospitalization, Disabling, Other)
  Sender: FDA-Public Use
  Company Number: NL-AUROBINDO-AUR-APL-2020-055351

PATIENT
  Sex: Male
  Weight: 91 kg

DRUGS (77)
  1. DEXAMETHASON [Suspect]
     Active Substance: DEXAMETHASONE
     Dosage: 10 MILLIGRAM, ONCE A DAY
     Route: 048
     Dates: start: 20201022, end: 20201022
  2. INSULIN GLARGINE [Suspect]
     Active Substance: INSULIN GLARGINE
     Dosage: 10 INTERNATIONAL UNIT, ONCE A DAY
     Route: 058
     Dates: start: 20201114, end: 20201114
  3. CIPROFLOXACIN. [Concomitant]
     Active Substance: CIPROFLOXACIN
     Indication: PRODUCT USED FOR UNKNOWN INDICATION
     Dosage: 500 MILLIGRAM, TWO TIMES A DAY
     Route: 048
     Dates: start: 20201024, end: 20201025
  4. GENTAMICIN. [Concomitant]
     Active Substance: GENTAMICIN
     Indication: PRODUCT USED FOR UNKNOWN INDICATION
     Dosage: 440 MILLIGRAM, TOTAL ONCE
     Route: 042
     Dates: start: 20201021
  5. HALOPERIDOL. [Concomitant]
     Active Substance: HALOPERIDOL
     Dosage: UNK
     Route: 048
     Dates: start: 20201025, end: 20201102
  6. INSULIN ASPART [Concomitant]
     Active Substance: INSULIN ASPART
     Indication: PRODUCT USED FOR UNKNOWN INDICATION
     Dosage: 4 INTERNATIONAL UNIT, ONCE A DAY (PRN )
     Route: 058
     Dates: start: 20201022, end: 20201027
  7. NADROPARIN [Concomitant]
     Active Substance: NADROPARIN
     Indication: PRODUCT USED FOR UNKNOWN INDICATION
     Dosage: 2850 INTERNATIONAL UNIT, ONCE A DAY
     Route: 058
     Dates: start: 20201024
  8. NOREPINEPHRINE. [Concomitant]
     Active Substance: NOREPINEPHRINE
     Indication: PRODUCT USED FOR UNKNOWN INDICATION
     Dosage: UNK
     Route: 042
     Dates: start: 20201024
  9. VALACICLOVIR [Concomitant]
     Active Substance: VALACYCLOVIR HYDROCHLORIDE
     Dosage: 500 MILLIGRAM, TWO TIMES A DAY
     Route: 048
     Dates: start: 20201112
  10. DEXAMETHASON [Suspect]
     Active Substance: DEXAMETHASONE
     Indication: NEUROTOXICITY
     Dosage: 10 MILLIGRAM, ONCE A DAY
     Route: 042
     Dates: start: 20201021, end: 20201021
  11. AXICABTAGENE CILOLEUCEL [Suspect]
     Active Substance: AXICABTAGENE CILOLEUCEL
     Indication: MANTLE CELL LYMPHOMA
     Dosage: UNK
     Route: 042
     Dates: start: 20201016, end: 20201016
  12. METHYLPREDNISOLONE. [Suspect]
     Active Substance: METHYLPREDNISOLONE
     Dosage: 1000 MILLIGRAM, ONCE A DAY
     Route: 042
     Dates: start: 20201109, end: 20201109
  13. COTRIMOXAZOL [Concomitant]
     Active Substance: SULFAMETHOXAZOLE\TRIMETHOPRIM
     Indication: PRODUCT USED FOR UNKNOWN INDICATION
     Dosage: 480 MILLIGRAM, ONCE A DAY
     Route: 048
     Dates: start: 20201013, end: 20201027
  14. CIPROFLOXACIN. [Concomitant]
     Active Substance: CIPROFLOXACIN
     Dosage: 400 MILLIGRAM, TWO TIMES A DAY
     Route: 042
     Dates: start: 20201025
  15. ESOMEPRAZOLE. [Concomitant]
     Active Substance: ESOMEPRAZOLE MAGNESIUM
     Dosage: 1 MILLIGRAM, ONCE A DAY
     Route: 048
     Dates: start: 20201111
  16. FLUCONAZOLE. [Concomitant]
     Active Substance: FLUCONAZOLE
     Dosage: 50 MILLIGRAM, ONCE A DAY
     Route: 042
     Dates: start: 20201025, end: 20201110
  17. FLUCONAZOLE. [Concomitant]
     Active Substance: FLUCONAZOLE
     Dosage: 50 MILLIGRAM, ONCE A DAY
     Route: 048
     Dates: start: 20201113
  18. HALOPERIDOL. [Concomitant]
     Active Substance: HALOPERIDOL
     Dosage: 2.5  MILLIGRAM, TWO TIMES A DAY
     Route: 042
     Dates: start: 20201109, end: 20201109
  19. HALOPERIDOL. [Concomitant]
     Active Substance: HALOPERIDOL
     Dosage: 2.5  MILLIGRAM, TWO TIMES A DAY
     Route: 042
     Dates: start: 20201112, end: 20201115
  20. LEVETIRACETAM. [Concomitant]
     Active Substance: LEVETIRACETAM
     Dosage: 500 MILLIGRAM, TWO TIMES A DAY
     Route: 042
     Dates: start: 20201025, end: 20201114
  21. PARACETAMOL [Concomitant]
     Active Substance: ACETAMINOPHEN
     Indication: CYTOKINE RELEASE SYNDROME
     Dosage: 1000 MILLIGRAM, FOUR TIMES/DAY
     Route: 048
     Dates: start: 20201013
  22. PARACETAMOL [Concomitant]
     Active Substance: ACETAMINOPHEN
     Indication: PYREXIA
  23. PARACETAMOL [Concomitant]
     Active Substance: ACETAMINOPHEN
     Indication: FATIGUE
  24. DEXAMETHASON [Suspect]
     Active Substance: DEXAMETHASONE
     Dosage: 10 MILLIGRAM, FOUR TIMES/DAY
     Route: 042
     Dates: start: 20201023, end: 20201024
  25. DEXAMETHASON [Suspect]
     Active Substance: DEXAMETHASONE
     Dosage: 10 MILLIGRAM, FOUR TIMES/DAY
     Route: 042
     Dates: start: 20201026, end: 20201102
  26. DEXAMETHASON [Suspect]
     Active Substance: DEXAMETHASONE
     Dosage: 10 MILLIGRAM, 3 TIMES A DAY
     Route: 042
     Dates: start: 20201103
  27. METHYLPREDNISOLONE. [Suspect]
     Active Substance: METHYLPREDNISOLONE
     Indication: PRODUCT USED FOR UNKNOWN INDICATION
     Dosage: 1000 MILLIGRAM, ONCE A DAY
     Route: 042
     Dates: start: 20201024, end: 20201026
  28. CALCIUM GLUCONATE. [Concomitant]
     Active Substance: CALCIUM GLUCONATE
     Indication: PRODUCT USED FOR UNKNOWN INDICATION
     Dosage: 1000 MILLIGRAM,1 TOTAL
     Route: 042
     Dates: start: 20201024
  29. ESOMEPRAZOLE. [Concomitant]
     Active Substance: ESOMEPRAZOLE MAGNESIUM
     Indication: PRODUCT USED FOR UNKNOWN INDICATION
     Dosage: 40 MILLIGRAM, ONCE A DAY
     Route: 042
     Dates: start: 20201025
  30. LEVETIRACETAM. [Concomitant]
     Active Substance: LEVETIRACETAM
     Dosage: 500 MILLIGRAM, TWO TIMES A DAY
     Route: 048
     Dates: start: 20201025, end: 20201114
  31. VALACICLOVIR [Concomitant]
     Active Substance: VALACYCLOVIR HYDROCHLORIDE
     Dosage: 260 MILLIGRAM, TWO TIMES A DAY
     Route: 065
     Dates: start: 20201110, end: 20201112
  32. R DHAC [DEXAMETHASONE] [Suspect]
     Active Substance: DEXAMETHASONE
  33. DEXAMETHASON [Suspect]
     Active Substance: DEXAMETHASONE
     Dosage: 10 MILLIGRAM, 3 TIMES A DAY
     Route: 042
     Dates: start: 20201102, end: 20201108
  34. ALLOPURINOL. [Concomitant]
     Active Substance: ALLOPURINOL
     Indication: PRODUCT USED FOR UNKNOWN INDICATION
     Dosage: 300 MILLIGRAM, ONCE A DAY
     Route: 048
     Dates: start: 20201016
  35. FLUCONAZOLE. [Concomitant]
     Active Substance: FLUCONAZOLE
     Dosage: 50 MILLIGRAM, ONCE A DAY
     Route: 065
     Dates: start: 20201111, end: 20201112
  36. HALOPERIDOL. [Concomitant]
     Active Substance: HALOPERIDOL
     Dosage: 1 MILLIGRAM, ONCE A DAY
     Route: 042
     Dates: start: 20201107, end: 20201108
  37. HALOPERIDOL. [Concomitant]
     Active Substance: HALOPERIDOL
     Dosage: 1 MILLIGRAM, ONCE A DAY
     Route: 048
     Dates: start: 20201116, end: 20201116
  38. LEVETIRACETAM. [Concomitant]
     Active Substance: LEVETIRACETAM
     Indication: PRODUCT USED FOR UNKNOWN INDICATION
     Dosage: 500 MILLIGRAM, TWO TIMES A DAY
     Route: 048
     Dates: start: 20201023
  39. TOCILIZUMAB. [Concomitant]
     Active Substance: TOCILIZUMAB
     Dosage: 800 MILLIGRAM, TOTAL
     Route: 065
     Dates: start: 20201021, end: 20201021
  40. R DHAC [CYTARABINE] [Suspect]
     Active Substance: CYTARABINE
  41. FLUDARABINE [Suspect]
     Active Substance: FLUDARABINE PHOSPHATE
     Indication: BONE MARROW CONDITIONING REGIMEN
     Dosage: UNK
     Route: 042
  42. CYCLOPHOSPHAMIDE. [Suspect]
     Active Substance: CYCLOPHOSPHAMIDE
     Indication: BONE MARROW CONDITIONING REGIMEN
     Dosage: UNK
     Route: 042
  43. INSULIN GLARGINE [Suspect]
     Active Substance: INSULIN GLARGINE
     Indication: PRODUCT USED FOR UNKNOWN INDICATION
     Dosage: UNK
     Route: 058
     Dates: start: 20201026, end: 20201103
  44. INSULIN GLARGINE [Suspect]
     Active Substance: INSULIN GLARGINE
     Dosage: 50 INTERNATIONAL UNIT, ONCE A DAY
     Route: 058
     Dates: start: 20201106, end: 20201108
  45. R DHAC [CARBOPLATIN] [Suspect]
     Active Substance: CARBOPLATIN
     Indication: MANTLE CELL LYMPHOMA
     Dosage: UNK
     Route: 065
  46. CEFTRIAXON [Concomitant]
     Active Substance: CEFTRIAXONE
     Dosage: 2000 MILLIGRAM, TWO TIMES A DAY
     Route: 042
     Dates: start: 20201109
  47. COTRIMOXAZOL [Concomitant]
     Active Substance: SULFAMETHOXAZOLE\TRIMETHOPRIM
     Dosage: 480 MILLIGRAM, ONCE A DAY
     Route: 042
     Dates: start: 20201027, end: 20201110
  48. PARACETAMOL [Concomitant]
     Active Substance: ACETAMINOPHEN
     Indication: HYPOTENSION
  49. SODIUM PHOSPHATE [Concomitant]
     Active Substance: SODIUM PHOSPHATE
     Dosage: 30 MILLIMOLE, TOTAL
     Route: 048
     Dates: start: 20201023, end: 20201023
  50. INSULIN GLARGINE [Suspect]
     Active Substance: INSULIN GLARGINE
     Dosage: 15 INTERNATIONAL UNIT, ONCE A DAY
     Route: 058
     Dates: start: 20201113, end: 20201113
  51. CEFTAZIDIME. [Concomitant]
     Active Substance: CEFTAZIDIME
     Indication: PRODUCT USED FOR UNKNOWN INDICATION
     Dosage: UNK
     Route: 065
     Dates: start: 20201017
  52. CEFTRIAXON [Concomitant]
     Active Substance: CEFTRIAXONE
     Indication: PRODUCT USED FOR UNKNOWN INDICATION
     Dosage: 2000 MILLIGRAM, TWO TIMES A DAY
     Route: 042
     Dates: start: 20201013, end: 20201013
  53. FLUCONAZOLE. [Concomitant]
     Active Substance: FLUCONAZOLE
     Indication: PRODUCT USED FOR UNKNOWN INDICATION
     Dosage: 50 MILLIGRAM, ONCE A DAY
     Route: 065
     Dates: start: 20201024, end: 20201027
  54. LEVETIRACETAM. [Concomitant]
     Active Substance: LEVETIRACETAM
     Dosage: 500 MILLIGRAM, TWO TIMES A DAY
     Route: 048
     Dates: start: 20201114
  55. PANTOPRAZOLE [Concomitant]
     Active Substance: PANTOPRAZOLE
     Indication: PRODUCT USED FOR UNKNOWN INDICATION
     Dosage: 40 MILLIGRAM, ONCE A DAY
     Route: 048
     Dates: start: 20201010, end: 20201024
  56. SODIUM PHOSPHATE [Concomitant]
     Active Substance: SODIUM PHOSPHATE
     Indication: PRODUCT USED FOR UNKNOWN INDICATION
     Dosage: 30 MILLIMOLE, TWO TIMES A DAY
     Route: 048
     Dates: start: 20201022, end: 20201103
  57. R DHAC [RITUXIMAB] [Suspect]
     Active Substance: RITUXIMAB
  58. INSULIN GLARGINE [Suspect]
     Active Substance: INSULIN GLARGINE
     Dosage: 20 INTERNATIONAL UNIT, ONCE A DAY
     Route: 058
     Dates: start: 20201111, end: 20201112
  59. INSULIN GLARGINE [Suspect]
     Active Substance: INSULIN GLARGINE
     Dosage: 5 INTERNATIONAL UNIT, ONCE A DAY
     Route: 058
     Dates: start: 20201115
  60. CLEMASTINE [Concomitant]
     Active Substance: CLEMASTINE
     Indication: PRODUCT USED FOR UNKNOWN INDICATION
     Dosage: 2 MILLIGRAM, 1 TOTAL
     Route: 042
     Dates: start: 20201016
  61. COTRIMOXAZOL [Concomitant]
     Active Substance: SULFAMETHOXAZOLE\TRIMETHOPRIM
     Dosage: 480 MILLIGRAM, ONCE A DAY
     Route: 048
     Dates: start: 20201115
  62. INSULIN ASPART [Concomitant]
     Active Substance: INSULIN ASPART
     Dosage: 1 DOSAGE FORM (AS NECESSARY) (2?6 IU)
     Route: 058
     Dates: start: 20201027
  63. TOCILIZUMAB. [Concomitant]
     Active Substance: TOCILIZUMAB
     Indication: CYTOKINE RELEASE SYNDROME
     Dosage: 800 MILLIGRAM, TOTAL
     Route: 042
     Dates: start: 20201018, end: 20201019
  64. TOCILIZUMAB. [Concomitant]
     Active Substance: TOCILIZUMAB
     Dosage: 800 MILLIGRAM, TOTAL
     Route: 065
     Dates: start: 20201023
  65. MESNA. [Suspect]
     Active Substance: MESNA
     Indication: PROPHYLAXIS
     Dosage: UNK
     Route: 042
  66. METHYLPREDNISOLONE. [Suspect]
     Active Substance: METHYLPREDNISOLONE
     Dosage: 500 MILLIGRAM, ONCE A DAY
     Route: 042
     Dates: start: 20201110, end: 20201110
  67. METHYLPREDNISOLONE. [Suspect]
     Active Substance: METHYLPREDNISOLONE
     Dosage: 250 MILLIGRAM, ONCE A DAY
     Route: 042
     Dates: start: 20201111
  68. COTRIMOXAZOL [Concomitant]
     Active Substance: SULFAMETHOXAZOLE\TRIMETHOPRIM
     Dosage: 480 MILLIGRAM, ONCE A DAY
     Route: 042
     Dates: start: 20201025, end: 20201110
  69. COTRIMOXAZOL [Concomitant]
     Active Substance: SULFAMETHOXAZOLE\TRIMETHOPRIM
     Dosage: 480 MILLIGRAM, ONCE A DAY
     Route: 065
     Dates: start: 20201111, end: 20201114
  70. HALOPERIDOL. [Concomitant]
     Active Substance: HALOPERIDOL
     Indication: PRODUCT USED FOR UNKNOWN INDICATION
     Dosage: 0.5 MILLIGRAM, 1 TOTAL
     Route: 048
     Dates: start: 20201025
  71. HALOPERIDOL. [Concomitant]
     Active Substance: HALOPERIDOL
     Dosage: 0.5 MILLIGRAM, ONCE A DAY
     Route: 048
     Dates: start: 20201117
  72. INSULIN ASPART [Concomitant]
     Active Substance: INSULIN ASPART
     Dosage: UNK, 0?100 IE/HOUR; CONTINUOUS
     Route: 042
  73. METOCLOPRAMIDE. [Concomitant]
     Active Substance: METOCLOPRAMIDE
     Indication: PRODUCT USED FOR UNKNOWN INDICATION
     Dosage: 10 MILLIGRAM, 3 TIMES A DAY
     Route: 065
     Dates: start: 20201021
  74. MORPHINE [Concomitant]
     Active Substance: MORPHINE
     Indication: PRODUCT USED FOR UNKNOWN INDICATION
     Dosage: 5 MILLIGRAM, TWO TIMES A DAY
     Route: 058
     Dates: start: 20201022
  75. ONDANSETRON [Concomitant]
     Active Substance: ONDANSETRON
     Indication: PRODUCT USED FOR UNKNOWN INDICATION
     Dosage: 8 MILLIGRAM, TWO TIMES A DAY
     Route: 048
     Dates: start: 20201009
  76. PANTOPRAZOLE [Concomitant]
     Active Substance: PANTOPRAZOLE
     Dosage: 40 MILLIGRAM, ONCE A DAY
     Route: 048
     Dates: start: 20201112
  77. VALACICLOVIR [Concomitant]
     Active Substance: VALACYCLOVIR HYDROCHLORIDE
     Indication: PRODUCT USED FOR UNKNOWN INDICATION
     Dosage: 500 MILLIGRAM, TWO TIMES A DAY
     Route: 048
     Dates: start: 20201009, end: 20201024

REACTIONS (15)
  - Delirium [Recovered/Resolved]
  - Hypothalamo-pituitary disorder [Recovered/Resolved]
  - Cytokine release syndrome [Recovered/Resolved]
  - Neutrophil count decreased [Recovered/Resolved]
  - Cognitive disorder [Recovered/Resolved]
  - Hyponatraemia [Recovered/Resolved]
  - Acute kidney injury [Recovered/Resolved]
  - Sinus bradycardia [Recovered/Resolved]
  - Hyperkalaemia [Recovered/Resolved]
  - Scrotal pain [Recovered/Resolved]
  - Platelet count decreased [Not Recovered/Not Resolved]
  - Febrile neutropenia [Recovered/Resolved]
  - Urinary retention [Recovered/Resolved]
  - Lymphocyte count decreased [Not Recovered/Not Resolved]
  - Haematuria [Not Recovered/Not Resolved]

NARRATIVE: CASE EVENT DATE: 20201009
